FAERS Safety Report 15917135 (Version 3)
Quarter: 2019Q1

REPORT INFORMATION
  Report Type: Spontaneous
  Country: GB (occurrence: GB)
  Receive Date: 20190205
  Receipt Date: 20190225
  Transmission Date: 20190417
  Serious: Yes (Hospitalization)
  Sender: FDA-Public Use
  Company Number: GB-ACCORD-105186

PATIENT
  Age: 77 Year
  Sex: Female

DRUGS (18)
  1. TIMOLOL. [Concomitant]
     Active Substance: TIMOLOL
     Route: 050
  2. LACTULOSE. [Concomitant]
     Active Substance: LACTULOSE
     Dosage: 3.1-3.7G/5ML
     Route: 048
  3. SPIRONOLACTONE. [Suspect]
     Active Substance: SPIRONOLACTONE
     Indication: PRODUCT USED FOR UNKNOWN INDICATION
     Dosage: IN THE MORNING.
     Route: 048
     Dates: end: 20180504
  4. SENNA ALEXANDRINA [Concomitant]
     Active Substance: SENNA LEAF
  5. ALLOPURINOL. [Concomitant]
     Active Substance: ALLOPURINOL
  6. QVAR [Concomitant]
     Active Substance: BECLOMETHASONE DIPROPIONATE
  7. COCODAMOL [Concomitant]
     Active Substance: ACETAMINOPHEN\CODEINE PHOSPHATE
     Dosage: 8MG/500MG
  8. DOCUSATE/DOCUSATE CALCIUM/DOCUSATE POTASSIUM/DOCUSATE SODIUM [Concomitant]
  9. DILTIAZEM. [Concomitant]
     Active Substance: DILTIAZEM
  10. AIROMIR [Concomitant]
     Active Substance: ALBUTEROL SULFATE
  11. BUMETANIDE. [Suspect]
     Active Substance: BUMETANIDE
     Indication: PRODUCT USED FOR UNKNOWN INDICATION
     Dosage: IN THE MORNING.
     Route: 048
     Dates: end: 20180504
  12. GABAPENTIN. [Concomitant]
     Active Substance: GABAPENTIN
  13. CLOTRIMAZOLE. [Concomitant]
     Active Substance: CLOTRIMAZOLE
  14. AMITRIPTYLINE [Concomitant]
     Active Substance: AMITRIPTYLINE
  15. NITROMIN [Concomitant]
  16. SIMVASTATIN. [Concomitant]
     Active Substance: SIMVASTATIN
  17. LANSOPRAZOLE. [Concomitant]
     Active Substance: LANSOPRAZOLE
  18. DICLOFENAC [Concomitant]
     Active Substance: DICLOFENAC

REACTIONS (4)
  - Syncope [Unknown]
  - Dehydration [Recovered/Resolved]
  - Orthostatic hypotension [Recovered/Resolved]
  - Renal impairment [Unknown]
